FAERS Safety Report 11529976 (Version 1)
Quarter: 2015Q3

REPORT INFORMATION
  Report Type: Spontaneous
  Country: CA (occurrence: CA)
  Receive Date: 20150921
  Receipt Date: 20150921
  Transmission Date: 20151125
  Serious: Yes (Hospitalization)
  Sender: FDA-Public Use
  Company Number: CA-TEVA-593873ACC

PATIENT
  Age: 75 Year
  Sex: Male
  Weight: 91 kg

DRUGS (13)
  1. LANSOPRAZOLE. [Concomitant]
     Active Substance: LANSOPRAZOLE
  2. MYLAN-NITRO PATCH [Concomitant]
  3. RAMIPRIL. [Concomitant]
     Active Substance: RAMIPRIL
  4. SPIRONOLACTONE. [Concomitant]
     Active Substance: SPIRONOLACTONE
  5. GABAPENTIN. [Concomitant]
     Active Substance: GABAPENTIN
  6. CYMBALTA [Concomitant]
     Active Substance: DULOXETINE HYDROCHLORIDE
  7. ALLOPURINOL. [Concomitant]
     Active Substance: ALLOPURINOL
  8. WARFARIN [Concomitant]
     Active Substance: WARFARIN
  9. AMIODARONE [Suspect]
     Active Substance: AMIODARONE
     Indication: VENTRICULAR TACHYCARDIA
     Dosage: 200 MILLIGRAM DAILY;
     Route: 065
  10. ATORVASTATIN CALCIUM. [Concomitant]
     Active Substance: ATORVASTATIN CALCIUM
  11. FUROSEMIDE. [Concomitant]
     Active Substance: FUROSEMIDE
  12. ASA [Concomitant]
     Active Substance: ASPIRIN
  13. BISOPROLOL [Concomitant]
     Active Substance: BISOPROLOL

REACTIONS (6)
  - Blood creatinine increased [Recovered/Resolved]
  - Orthostatic hypertension [Recovered/Resolved]
  - Acute kidney injury [Recovered/Resolved]
  - Interstitial lung disease [Recovered/Resolved]
  - Presyncope [Recovered/Resolved]
  - Dyspnoea [Recovered/Resolved]
